FAERS Safety Report 8100757-2 (Version None)
Quarter: 2012Q1

REPORT INFORMATION
  Report Type: 
  Country: None (occurrence: None)
  Receive Date: 20120129
  Receipt Date: 20110929
  Transmission Date: 20120608
  Serious: No
  Sender: FDA-Public Use
  Company Number: US-ABBOTT-11P-163-0858976-00

PATIENT
  Sex: Female
  Weight: 55.388 kg

DRUGS (3)
  1. VICODIN [Concomitant]
     Indication: PAIN
  2. GABEPENTIN [Concomitant]
     Indication: NEUROPATHY PERIPHERAL
  3. HUMIRA [Suspect]
     Indication: ANKYLOSING SPONDYLITIS
     Dates: start: 20100801

REACTIONS (2)
  - ABDOMINAL RIGIDITY [None]
  - WEIGHT INCREASED [None]
